FAERS Safety Report 4262251-9 (Version None)
Quarter: 2004Q1

REPORT INFORMATION
  Report Type: 
  Country: None (occurrence: None)
  Receive Date: 20040102
  Receipt Date: 20031211
  Transmission Date: 20041129
  Serious: Yes (Hospitalization, Other)
  Sender: FDA-Public Use
  Company Number: PHNR2003AU01719

PATIENT
  Sex: Female

DRUGS (7)
  1. CLOZARIL [Suspect]
     Dosage: 100 - 600 MG/DAY
     Route: 048
     Dates: start: 20030423, end: 20031210
  2. ISOSORBIDE DINITRATE [Concomitant]
     Route: 048
  3. CLOPIDOGREL [Concomitant]
     Route: 048
  4. VALPROATE SODIUM [Concomitant]
     Route: 048
  5. VENLAFAXINE HCL [Concomitant]
     Route: 048
  6. SIMVASTATIN [Concomitant]
     Route: 048
  7. RANITIDINE [Concomitant]
     Route: 048

REACTIONS (7)
  - ASTHENIA [None]
  - DIZZINESS [None]
  - FALL [None]
  - HYPOTENSION [None]
  - MENTAL STATUS CHANGES [None]
  - REFLEXES ABNORMAL [None]
  - TRANSIENT ISCHAEMIC ATTACK [None]
